FAERS Safety Report 19257703 (Version 1)
Quarter: 2021Q2

REPORT INFORMATION
  Report Type: Spontaneous
  Country: US (occurrence: US)
  Receive Date: 20210514
  Receipt Date: 20210514
  Transmission Date: 20210717
  Serious: No
  Sender: FDA-Public Use
  Company Number: US-ORGANON-O2105USA000167

PATIENT
  Age: 32 Year
  Sex: Female

DRUGS (5)
  1. FOLLISTIM AQ [Suspect]
     Active Substance: FOLLITROPIN
     Indication: INFERTILITY FEMALE
     Dosage: 150 TO 450 UNITS, QD FOR 10 TO 14 DAYS
     Route: 058
     Dates: start: 20210317
  2. MENOPUR [Concomitant]
     Active Substance: FOLLITROPIN\LUTEINIZING HORMONE
  3. GANIRELIX ACETATE INJECTION [Concomitant]
     Active Substance: GANIRELIX ACETATE
     Dosage: UNK
  4. CRINONE [Concomitant]
     Active Substance: PROGESTERONE
  5. NORTREL [LEVONORGESTREL] [Concomitant]

REACTIONS (1)
  - Constipation [Unknown]

NARRATIVE: CASE EVENT DATE: 202104
